FAERS Safety Report 16048794 (Version 3)
Quarter: 2019Q2

REPORT INFORMATION
  Report Type: Spontaneous
  Country: US (occurrence: US)
  Receive Date: 20190307
  Receipt Date: 20190509
  Transmission Date: 20190711
  Serious: No
  Sender: FDA-Public Use
  Company Number: US-SA-2019SA064058

PATIENT
  Age: 51 Year
  Sex: Female

DRUGS (1)
  1. DUPIXENT [Suspect]
     Active Substance: DUPILUMAB
     Indication: DERMATITIS CONTACT
     Dosage: 300 MG, QOW
     Route: 058
     Dates: start: 20190128

REACTIONS (6)
  - Dizziness [Unknown]
  - Arthralgia [Unknown]
  - Oral herpes [Unknown]
  - Therapeutic response shortened [Unknown]
  - Disorientation [Unknown]
  - Dermatitis [Unknown]

NARRATIVE: CASE EVENT DATE: 201904
